FAERS Safety Report 13564445 (Version 2)
Quarter: 2017Q2

REPORT INFORMATION
  Report Type: Spontaneous
  Country: JP (occurrence: JP)
  Receive Date: 20170519
  Receipt Date: 20170609
  Transmission Date: 20170830
  Serious: Yes (Death)
  Sender: FDA-Public Use
  Company Number: JP-SA-2017SA089541

PATIENT
  Sex: Female
  Weight: 30 kg

DRUGS (1)
  1. CEREZYME [Suspect]
     Active Substance: IMIGLUCERASE
     Dosage: DOSE: 4 VIALS
     Route: 041
     Dates: start: 20030417, end: 20170127

REACTIONS (4)
  - Respiratory failure [Fatal]
  - Disease progression [Unknown]
  - Bedridden [Unknown]
  - Asthenia [Unknown]
